FAERS Safety Report 6634979-4 (Version None)
Quarter: 2010Q1

REPORT INFORMATION
  Report Type: 
  Country: None (occurrence: None)
  Receive Date: 20100315
  Receipt Date: 20100119
  Transmission Date: 20100710
  Serious: Yes (Death, Other)
  Sender: FDA-Public Use
  Company Number: US-PURDUE-USA-2010-0041966

PATIENT
  Sex: Female
  Weight: 58.957 kg

DRUGS (1)
  1. OXYCONTIN [Suspect]
     Indication: PAIN
     Dosage: UNK
     Dates: start: 20020104, end: 20020911

REACTIONS (2)
  - DRUG DEPENDENCE [None]
  - MYOCARDIAL INFARCTION [None]
